FAERS Safety Report 23611390 (Version 2)
Quarter: 2024Q1

REPORT INFORMATION
  Report Type: Report from Study
  Country: US (occurrence: US)
  Receive Date: 20240308
  Receipt Date: 20240320
  Transmission Date: 20240410
  Serious: Yes (Other)
  Sender: FDA-Public Use
  Company Number: US-AMX-006350

PATIENT
  Age: 68 Year
  Sex: Male

DRUGS (1)
  1. RELYVRIO [Suspect]
     Active Substance: SODIUM PHENYLBUTYRATE\TAURURSODIOL
     Indication: Amyotrophic lateral sclerosis
     Dosage: 1 SACHET ONCE DAILY FOR FIRST 3 WEEKS, THEN 1 SACHET TWICE DAILY
     Route: 048
     Dates: start: 202311

REACTIONS (9)
  - Neuropathy peripheral [Unknown]
  - Diarrhoea [Unknown]
  - Unevaluable event [Unknown]
  - Peripheral swelling [Not Recovered/Not Resolved]
  - Fluid retention [Unknown]
  - Skin discolouration [Unknown]
  - Intentional dose omission [Unknown]
  - Feeling hot [Unknown]
  - Peripheral coldness [Unknown]
